FAERS Safety Report 11054541 (Version 2)
Quarter: 2015Q2

REPORT INFORMATION
  Report Type: Spontaneous
  Country: US (occurrence: US)
  Receive Date: 20150422
  Receipt Date: 20150616
  Transmission Date: 20150821
  Serious: Yes (Other)
  Sender: FDA-Public Use
  Company Number: US-NOVOPROD-446141

PATIENT
  Age: 48 Year
  Sex: Female

DRUGS (1)
  1. LEVEMIR [Suspect]
     Active Substance: INSULIN DETEMIR
     Indication: TYPE 2 DIABETES MELLITUS
     Dosage: UNK
     Route: 058
     Dates: start: 20150327, end: 20150413

REACTIONS (2)
  - Injection site cellulitis [Not Recovered/Not Resolved]
  - Product contamination microbial [Not Recovered/Not Resolved]

NARRATIVE: CASE EVENT DATE: 20150409
